FAERS Safety Report 23732119 (Version 3)
Quarter: 2024Q2

REPORT INFORMATION
  Report Type: Report from Study
  Country: US (occurrence: US)
  Receive Date: 20240411
  Receipt Date: 20240523
  Transmission Date: 20240715
  Serious: Yes (Other)
  Sender: FDA-Public Use
  Company Number: US-INCYTE CORPORATION-2024IN002737

PATIENT

DRUGS (2)
  1. JAKAFI [Suspect]
     Active Substance: RUXOLITINIB
     Indication: Myelofibrosis
     Dosage: UNK
     Route: 048
  2. JAKAFI [Suspect]
     Active Substance: RUXOLITINIB
     Dosage: 15 MILLIGRAM, BID
     Route: 048
     Dates: start: 20240411

REACTIONS (5)
  - Platelet count decreased [Recovered/Resolved]
  - Splenomegaly [Not Recovered/Not Resolved]
  - Wound [Recovered/Resolved]
  - Bursitis [Unknown]
  - Product availability issue [Unknown]

NARRATIVE: CASE EVENT DATE: 20240408
